FAERS Safety Report 4524558-7 (Version None)
Quarter: 2004Q4

REPORT INFORMATION
  Report Type: 
  Country: None (occurrence: None)
  Receive Date: 20041117
  Receipt Date: 20040430
  Transmission Date: 20050328
  Serious: Yes (Hospitalization)
  Sender: FDA-Public Use
  Company Number: US-JNJFOC-20040500177

PATIENT
  Age: 60 Year
  Sex: Male
  Weight: 108.8633 kg

DRUGS (7)
  1. LEVAQUIN [Suspect]
     Indication: SINUSITIS
     Dosage: 500 MG, 1 IN 1 DAY
  2. COREG [Concomitant]
  3. ALTACE (RAMIPRIL) [Concomitant]
  4. LEVOTHYROXINE SODIUM [Concomitant]
  5. NAPROSYN [Concomitant]
  6. NORVASE (AMLODIPINE BESILATE) [Concomitant]
  7. POTASSIUM (POTASSIUM) TABLETS [Concomitant]

REACTIONS (1)
  - ANAPHYLACTIC SHOCK [None]
